FAERS Safety Report 24570001 (Version 3)
Quarter: 2024Q4

REPORT INFORMATION
  Report Type: Spontaneous
  Country: US (occurrence: US)
  Receive Date: 20241031
  Receipt Date: 20241216
  Transmission Date: 20250115
  Serious: No
  Sender: PFIZER
  Company Number: US-PFIZER INC-PV202400140499

PATIENT
  Age: 63 Year
  Sex: Female

DRUGS (1)
  1. IBRANCE [Suspect]
     Active Substance: PALBOCICLIB
     Dosage: UNK

REACTIONS (10)
  - Nausea [Not Recovered/Not Resolved]
  - Constipation [Not Recovered/Not Resolved]
  - Flatulence [Unknown]
  - Epistaxis [Unknown]
  - Malaise [Unknown]
  - Insomnia [Unknown]
  - Fatigue [Unknown]
  - Pain [Unknown]
  - Oropharyngeal pain [Unknown]
  - Dysphagia [Unknown]
